FAERS Safety Report 23412556 (Version 3)
Quarter: 2024Q2

REPORT INFORMATION
  Report Type: Report from Study
  Country: EG (occurrence: None)
  Receive Date: 20240117
  Receipt Date: 20240402
  Transmission Date: 20240716
  Serious: Yes (Hospitalization, Other)
  Sender: FDA-Public Use
  Company Number: 2024A010435

PATIENT
  Age: 56 Year
  Sex: Female

DRUGS (2)
  1. LYNPARZA [Suspect]
     Active Substance: OLAPARIB
     Indication: Pancreatic disorder
     Route: 048
     Dates: start: 20231211
  2. LYNPARZA [Suspect]
     Active Substance: OLAPARIB
     Indication: Pancreatic disorder
     Route: 048
     Dates: start: 20231211

REACTIONS (3)
  - Haematemesis [Recovering/Resolving]
  - Malignant neoplasm progression [Unknown]
  - Intentional dose omission [Recovering/Resolving]
